FAERS Safety Report 25792318 (Version 1)
Quarter: 2025Q3

REPORT INFORMATION
  Report Type: Spontaneous
  Country: CA (occurrence: CA)
  Receive Date: 20250911
  Receipt Date: 20250911
  Transmission Date: 20251020
  Serious: Yes (Other)
  Sender: PFIZER
  Company Number: CA-PFIZER INC-202500178567

PATIENT
  Age: 47 Year
  Sex: Female

DRUGS (2)
  1. METHOTREXATE SODIUM [Interacting]
     Active Substance: METHOTREXATE SODIUM
  2. PIPERACILLIN [Interacting]
     Active Substance: PIPERACILLIN
     Route: 030

REACTIONS (2)
  - Drug interaction [Recovering/Resolving]
  - Blood creatinine increased [Recovering/Resolving]
